FAERS Safety Report 8611133-8 (Version None)
Quarter: 2012Q3

REPORT INFORMATION
  Report Type: 
  Country: None (occurrence: None)
  Receive Date: 20120806
  Receipt Date: 20120806
  Transmission Date: 20120928
  Serious: Yes (Other)
  Sender: FDA-Public Use
  Company Number: None

PATIENT
  Age: 54 Year
  Sex: Female

DRUGS (5)
  1. LITHIUM CARBONATE [Concomitant]
  2. EFFEXOR [Concomitant]
  3. AMPYRA [Suspect]
     Indication: GAIT DISTURBANCE
     Dosage: 10 MG, BID, ORAL
     Route: 048
     Dates: start: 20120501, end: 20120701
  4. COPAXONE [Concomitant]
  5. VALIUM [Concomitant]

REACTIONS (7)
  - CONVULSION [None]
  - FALL [None]
  - HYPOAESTHESIA [None]
  - DIZZINESS [None]
  - TREMOR [None]
  - ABDOMINAL DISCOMFORT [None]
  - CHILLS [None]
